FAERS Safety Report 13114439 (Version 4)
Quarter: 2017Q2

REPORT INFORMATION
  Report Type: Report from Study
  Country: CO (occurrence: CO)
  Receive Date: 20170113
  Receipt Date: 20170517
  Transmission Date: 20170830
  Serious: Yes (Other)
  Sender: FDA-Public Use
  Company Number: CO-SA-2017SA006347

PATIENT
  Age: 30 Year
  Sex: Female

DRUGS (1)
  1. LEMTRADA [Suspect]
     Active Substance: ALEMTUZUMAB
     Indication: MULTIPLE SCLEROSIS
     Route: 041
     Dates: start: 20161121, end: 20161125

REACTIONS (9)
  - Monocyte percentage increased [Unknown]
  - Blood thyroid stimulating hormone increased [Unknown]
  - Lymphocyte count decreased [Unknown]
  - Blood creatinine increased [Not Recovered/Not Resolved]
  - Eosinophil count increased [Unknown]
  - Urine analysis abnormal [Recovered/Resolved]
  - Neutrophil percentage decreased [Unknown]
  - Leukopenia [Not Recovered/Not Resolved]
  - Neutrophil percentage increased [Recovered/Resolved]

NARRATIVE: CASE EVENT DATE: 20161228
